FAERS Safety Report 21382630 (Version 2)
Quarter: 2022Q4

REPORT INFORMATION
  Report Type: Other
  Country: US (occurrence: None)
  Receive Date: 20220927
  Receipt Date: 20221028
  Transmission Date: 20230113
  Serious: Yes (Death, Other)
  Sender: FDA-Public Use
  Company Number: US-ROCHE-3129603

PATIENT
  Age: 46 Year
  Sex: Female
  Weight: 79.904 kg

DRUGS (9)
  1. OCRELIZUMAB [Suspect]
     Active Substance: OCRELIZUMAB
     Indication: Relapsing-remitting multiple sclerosis
     Route: 042
     Dates: start: 20210702
  2. OCRELIZUMAB [Suspect]
     Active Substance: OCRELIZUMAB
     Route: 042
     Dates: start: 20210716
  3. SOLU-MEDROL [Concomitant]
     Active Substance: METHYLPREDNISOLONE SODIUM SUCCINATE
  4. MIRENA [Concomitant]
     Active Substance: LEVONORGESTREL
  5. PROPRANOLOL [Concomitant]
     Active Substance: PROPRANOLOL HYDROCHLORIDE
  6. MECLIZINE [Concomitant]
     Active Substance: MECLIZINE HYDROCHLORIDE
  7. BACLOFEN [Concomitant]
     Active Substance: BACLOFEN
  8. GABAPENTIN [Concomitant]
     Active Substance: GABAPENTIN
     Indication: Relapsing-remitting multiple sclerosis
  9. SERTRALINE HYDROCHLORIDE [Concomitant]
     Active Substance: SERTRALINE HYDROCHLORIDE

REACTIONS (12)
  - Death [Fatal]
  - Chest pain [Unknown]
  - Anxiety [Unknown]
  - Thermal burn [Unknown]
  - Dry mouth [Unknown]
  - Tremor [Unknown]
  - Depression [Unknown]
  - JC polyomavirus test positive [Unknown]
  - Insomnia [Unknown]
  - Multiple sclerosis [Unknown]
  - Hemianopia homonymous [Unknown]
  - Ill-defined disorder [Unknown]

NARRATIVE: CASE EVENT DATE: 20211203
